FAERS Safety Report 6528369-2 (Version None)
Quarter: 2010Q1

REPORT INFORMATION
  Report Type: 
  Country: None (occurrence: None)
  Receive Date: 20100106
  Receipt Date: 20091222
  Transmission Date: 20100710
  Serious: Yes (Life-Threatening)
  Sender: FDA-Public Use
  Company Number: US-ROCHE-677284

PATIENT
  Age: 69 Year
  Sex: Female

DRUGS (2)
  1. BEVACIZUMAB [Suspect]
     Indication: ENDOMETRIAL CANCER
     Dosage: FREQUENCY: DAYS 1 AND 15.  CYCLE 4 WEEKS ADMINISTERED OVER 30-90 MINUTES. PATIENT REMOVED FROM STUDY
     Route: 042
     Dates: start: 20081203
  2. TEMSIROLIMUS [Suspect]
     Indication: ENDOMETRIAL CANCER
     Dosage: FREQUENCY: DAYS 1, 8, 15, 22  CYCLE 4 WEEKS.ADMINISTERED OVER 30 MINUTES. PATIENT REMOVED FROM STUDY
     Route: 042
     Dates: start: 20081203

REACTIONS (2)
  - COGNITIVE DISORDER [None]
  - FATIGUE [None]
